FAERS Safety Report 8098067 (Version 7)
Quarter: 2013Q4

REPORT INFORMATION
  Report Type: Spontaneous
  Country: US (occurrence: US)
  Receive Date: 20110819
  Receipt Date: 20131022
  Transmission Date: 20140711
  Serious: Yes (Other)
  Sender: FDA-Public Use
  Company Number: US-ROCHE-797443

PATIENT
  Age: 35 Year
  Sex: Female
  Weight: 83.99 kg

DRUGS (1)
  1. ACCUTANE [Suspect]
     Indication: ACNE
     Dosage: DOSE RANGE: 40 MG TO 80 MG
     Route: 065
     Dates: start: 199504, end: 19960217

REACTIONS (11)
  - Colitis ulcerative [Unknown]
  - Inflammatory bowel disease [Unknown]
  - Depression [Unknown]
  - Suicidal ideation [Unknown]
  - Large intestine polyp [Unknown]
  - Irritable bowel syndrome [Unknown]
  - Alopecia [Unknown]
  - Xerosis [Unknown]
  - Blepharitis [Unknown]
  - Cheilitis [Unknown]
  - Dermatitis [Unknown]
